FAERS Safety Report 4343106-8 (Version None)
Quarter: 2004Q2

REPORT INFORMATION
  Report Type: 
  Country: None (occurrence: None)
  Receive Date: 20040421
  Receipt Date: 20040323
  Transmission Date: 20050107
  Serious: Yes (Hospitalization, Other)
  Sender: FDA-Public Use
  Company Number: US-GLAXOSMITHKLINE-A0504081A

PATIENT
  Age: 80 Year
  Sex: Female

DRUGS (4)
  1. CARVEDILOL [Suspect]
     Indication: CARDIAC FAILURE
     Dosage: 6.25MG TWICE PER DAY
     Route: 048
     Dates: start: 20040101, end: 20040315
  2. LASIX [Concomitant]
     Dosage: 20MG PER DAY
     Route: 048
  3. ALTACE [Concomitant]
     Dosage: 7.5MG TWICE PER DAY
     Route: 048
  4. ALDACTONE [Concomitant]
     Dosage: 25MG PER DAY
     Route: 048

REACTIONS (5)
  - ALANINE AMINOTRANSFERASE INCREASED [None]
  - ASPARTATE AMINOTRANSFERASE INCREASED [None]
  - BLOOD ALKALINE PHOSPHATASE INCREASED [None]
  - BLOOD BILIRUBIN INCREASED [None]
  - HEPATITIS [None]
